FAERS Safety Report 13199043 (Version 1)
Quarter: 2017Q1

REPORT INFORMATION
  Report Type: Spontaneous
  Country: US (occurrence: US)
  Receive Date: 20170208
  Receipt Date: 20170208
  Transmission Date: 20170428
  Serious: Yes (Other)
  Sender: FDA-Public Use
  Company Number: PHEH2017US003346

PATIENT
  Sex: Female

DRUGS (2)
  1. MEKINIST [Suspect]
     Active Substance: TRAMETINIB DIMETHYL SULFOXIDE
     Indication: MALIGNANT MELANOMA
     Route: 065
  2. TAFINLAR [Suspect]
     Active Substance: DABRAFENIB MESYLATE
     Indication: MALIGNANT MELANOMA
     Route: 065

REACTIONS (8)
  - Abdominal mass [Unknown]
  - Alopecia [Unknown]
  - Eyelid cyst [Unknown]
  - Oral pain [Unknown]
  - Pyrexia [Unknown]
  - Gastrointestinal carcinoma [Unknown]
  - Mass [Unknown]
  - Rash [Unknown]
